FAERS Safety Report 5950505-7 (Version None)
Quarter: 2008Q4

REPORT INFORMATION
  Report Type: 
  Country: None (occurrence: None)
  Receive Date: 20081022
  Receipt Date: 20080708
  Transmission Date: 20090506
  Serious: No
  Sender: FDA-Public Use
  Company Number: ALL1-2008-01646

PATIENT
  Age: 14 Year
  Sex: Male
  Weight: 81.6 kg

DRUGS (2)
  1. VYVANSE [Suspect]
     Indication: ATTENTION DEFICIT/HYPERACTIVITY DISORDER
     Dosage: 30 MG, 1X/DAY:QD, ORAL
     Route: 048
     Dates: start: 20080529, end: 20080531
  2. PROZAC [Suspect]
     Indication: ANXIETY
     Dosage: 20 MG, 1X/DAY:QD, ORAL
     Route: 048
     Dates: start: 20080430, end: 20080531

REACTIONS (4)
  - OEDEMA PERIPHERAL [None]
  - OFF LABEL USE [None]
  - PRURITUS [None]
  - URTICARIA [None]
